FAERS Safety Report 5954560-X (Version None)
Quarter: 2008Q4

REPORT INFORMATION
  Report Type: 
  Country: None (occurrence: None)
  Receive Date: 20081117
  Receipt Date: 20081110
  Transmission Date: 20090506
  Serious: Yes (Hospitalization)
  Sender: FDA-Public Use
  Company Number: DE-JNJFOC-20081102673

PATIENT
  Sex: Male
  Weight: 62 kg

DRUGS (7)
  1. REMICADE [Suspect]
     Route: 042
  2. REMICADE [Suspect]
     Route: 042
  3. REMICADE [Suspect]
     Indication: CROHN'S DISEASE
     Route: 042
  4. CERTOLIZUMAB [Concomitant]
     Indication: CROHN'S DISEASE
  5. VITAMIN D [Concomitant]
     Indication: OSTEOPOROSIS
  6. KALINOR [Concomitant]
     Indication: HYPOKALAEMIA
  7. OMEPRAZOLE [Concomitant]

REACTIONS (1)
  - ARTERIOSCLEROSIS [None]
